FAERS Safety Report 19756840 (Version 2)
Quarter: 2021Q4

REPORT INFORMATION
  Report Type: Report from Study
  Country: FR (occurrence: FR)
  Receive Date: 20210827
  Receipt Date: 20211223
  Transmission Date: 20220303
  Serious: Yes (Other)
  Sender: FDA-Public Use
  Company Number: FR-MYLANLABS-2021M1055864

PATIENT
  Age: 53 Year
  Sex: Female

DRUGS (2)
  1. HULIO [Suspect]
     Active Substance: ADALIMUMAB-FKJP
     Dosage: 40 MILLIGRAM, Q2W, EVERY 14 DAYS
     Dates: start: 20210609
  2. COSENTYX [Suspect]
     Active Substance: SECUKINUMAB
     Indication: Ankylosing spondylitis
     Dosage: 150 MILLIGRAM, QW, FOR 5 WEEKS, THEN EVERY 14 DAYS
     Dates: start: 20211210

REACTIONS (7)
  - Drug ineffective [Not Recovered/Not Resolved]
  - Swelling [Unknown]
  - Pain [Unknown]
  - Hypotonia [Unknown]
  - Fine motor skill dysfunction [Unknown]
  - Discomfort [Unknown]
  - Synovitis [Unknown]
